FAERS Safety Report 9025341 (Version 2)
Quarter: 2013Q3

REPORT INFORMATION
  Report Type: Spontaneous
  Country: MX (occurrence: MX)
  Receive Date: 20121211
  Receipt Date: 20130801
  Transmission Date: 20140515
  Serious: Yes (Other)
  Sender: FDA-Public Use
  Company Number: PHHY2012MX113186

PATIENT
  Age: 21 Year
  Sex: Male

DRUGS (3)
  1. TASIGNA [Suspect]
     Indication: CHRONIC MYELOID LEUKAEMIA
     Dosage: 800 MG/DAY
     Route: 048
  2. TASIGNA [Suspect]
     Dosage: 600 MG/DAY
  3. TASIGNA [Suspect]
     Dosage: 800 MG/DAY

REACTIONS (4)
  - Onychomadesis [Recovered/Resolved]
  - Drug intolerance [Unknown]
  - Chloasma [Recovered/Resolved]
  - Rash [Recovered/Resolved]
